FAERS Safety Report 9233827 (Version 2)
Quarter: 2013Q2

REPORT INFORMATION
  Report Type: Spontaneous
  Country: BR (occurrence: BR)
  Receive Date: 20130416
  Receipt Date: 20130424
  Transmission Date: 20140414
  Serious: Yes (Hospitalization, Other)
  Sender: FDA-Public Use
  Company Number: BR-PFIZER INC-2013117602

PATIENT
  Age: 86 Year
  Sex: Female

DRUGS (8)
  1. ATENOLOL [Suspect]
     Dosage: 50 MG, UNK
     Route: 048
  2. OMEPRAZOLE [Suspect]
     Indication: ABDOMINAL PAIN UPPER
     Dosage: UNK
     Route: 048
  3. ATACAND HCT [Suspect]
     Indication: BLOOD PRESSURE ABNORMAL
     Dosage: 16/12.5 MG, UNK
     Route: 048
     Dates: end: 201302
  4. CRESTOR [Suspect]
     Dosage: 10 MG, UNK
     Route: 048
  5. PURAN T4 [Concomitant]
     Dosage: UNK
     Route: 048
  6. MINIPRESS [Concomitant]
     Dosage: UNK
     Route: 048
  7. CELEBRATE [Concomitant]
     Indication: CEREBRAL ISCHAEMIA
     Dosage: 50 MG, 2X/DAY
     Route: 048
  8. PLAVIX [Concomitant]
     Indication: CEREBRAL ISCHAEMIA
     Dosage: 75 MG, UNK
     Route: 048

REACTIONS (5)
  - Cerebral ischaemia [Not Recovered/Not Resolved]
  - Blood potassium decreased [Recovering/Resolving]
  - Blood sodium decreased [Recovering/Resolving]
  - Syncope [Recovered/Resolved]
  - Depression [Not Recovered/Not Resolved]
